FAERS Safety Report 6983118-9 (Version None)
Quarter: 2010Q3

REPORT INFORMATION
  Report Type: 
  Country: None (occurrence: None)
  Receive Date: 20100914
  Receipt Date: 20100621
  Transmission Date: 20110219
  Serious: No
  Sender: FDA-Public Use
  Company Number: US-PFIZER INC-2010059489

PATIENT
  Sex: Male
  Weight: 107 kg

DRUGS (2)
  1. LYRICA [Suspect]
     Indication: NEURALGIA
     Dosage: 300 MG, 2X/DAY
     Route: 048
     Dates: start: 20100201
  2. PERCOCET [Concomitant]
     Indication: PAIN
     Dosage: UNK MG, UNK
     Route: 048

REACTIONS (1)
  - WEIGHT INCREASED [None]
